FAERS Safety Report 4334029-9 (Version None)
Quarter: 2004Q1

REPORT INFORMATION
  Report Type: 
  Country: None (occurrence: None)
  Receive Date: 20040329
  Receipt Date: 20040114
  Transmission Date: 20041129
  Serious: No
  Sender: FDA-Public Use
  Company Number: 04P-163-0247104-00

PATIENT
  Age: 58 Year
  Sex: Female
  Weight: 61.2356 kg

DRUGS (6)
  1. HUMIRA [Suspect]
     Indication: RHEUMATOID ARTHRITIS
     Dosage: 40 MG, 1 IN 2 WK, SUBCUTANEOUS
     Route: 058
     Dates: start: 20031230
  2. HYDROXYCHLOROQUINE PHOSPHATE [Concomitant]
  3. NAPROXEN [Concomitant]
  4. ALENDRONATE SODIUM [Concomitant]
  5. HYDROCHLOROTHIAZIDE [Concomitant]
  6. RANITIDINE HYDROCHLORIDE [Concomitant]

REACTIONS (5)
  - CHEST DISCOMFORT [None]
  - CHILLS [None]
  - HEADACHE [None]
  - PARAESTHESIA [None]
  - TREMOR [None]
